FAERS Safety Report 12823759 (Version 2)
Quarter: 2016Q4

REPORT INFORMATION
  Report Type: Spontaneous
  Country: US (occurrence: US)
  Receive Date: 20161007
  Receipt Date: 20161107
  Transmission Date: 20170207
  Serious: No
  Sender: FDA-Public Use
  Company Number: US-GLAXOSMITHKLINE-US2016146425

PATIENT
  Sex: Female
  Weight: 49.89 kg

DRUGS (38)
  1. BREO ELLIPTA [Suspect]
     Active Substance: FLUTICASONE FUROATE\VILANTEROL TRIFENATATE
     Indication: ASTHMA
     Dosage: 1 PUFF(S), QD (100/25 MCG)
     Route: 055
     Dates: start: 20160122
  2. BUTALBITAL + CAFFEINE + CODEINE + PARACETAMOL [Concomitant]
  3. COMBIVENT RESPIMAT [Concomitant]
     Active Substance: ALBUTEROL SULFATE\IPRATROPIUM BROMIDE
  4. HYDROXYZINE HCL TABLET [Concomitant]
     Active Substance: HYDROXYZINE HYDROCHLORIDE
  5. ZOLMITRIPTAN. [Concomitant]
     Active Substance: ZOLMITRIPTAN
  6. BREO ELLIPTA [Suspect]
     Active Substance: FLUTICASONE FUROATE\VILANTEROL TRIFENATATE
     Dosage: 1 PUFF(S), QD (200 MCG)
     Route: 055
     Dates: start: 20160412
  7. BREO ELLIPTA [Suspect]
     Active Substance: FLUTICASONE FUROATE\VILANTEROL TRIFENATATE
     Dosage: 1 PUFF(S), QD (200 MCG)
     Route: 055
     Dates: start: 20160727
  8. BREO ELLIPTA [Suspect]
     Active Substance: FLUTICASONE FUROATE\VILANTEROL TRIFENATATE
     Dosage: 1 PUFF(S), QOD (100/25 MCG)
     Route: 055
     Dates: start: 20160727
  9. BETAMETHASONE 0.05% CREAM [Concomitant]
  10. BOTOX [Concomitant]
     Active Substance: ONABOTULINUMTOXINA
  11. CLONAZEPAM. [Concomitant]
     Active Substance: CLONAZEPAM
  12. HYOSCYAMINE SULFATE. [Concomitant]
     Active Substance: HYOSCYAMINE SULFATE
  13. PANTOPRAZOLE MODIFIED-RELEASE TABLET [Concomitant]
  14. PROMETHAZINE TABLET [Concomitant]
  15. BUPROPION HCL PROLONGED-RELEASE TABLET [Concomitant]
     Active Substance: BUPROPION HYDROCHLORIDE
  16. METHYLPREDNISOLONE TABLET [Concomitant]
  17. METOCLOPRAMIDE TABLET [Concomitant]
  18. ONDANSETRON HYDROCHLORIDE CAPSULE [Concomitant]
  19. RELPAX [Concomitant]
     Active Substance: ELETRIPTAN HYDROBROMIDE
  20. SUMATRIPTAN (SUMATRIPTAN SUCCINATE) TABLET [Concomitant]
     Active Substance: SUMATRIPTAN
  21. AMITIZA [Concomitant]
     Active Substance: LUBIPROSTONE
  22. CLINDAMYCIN CAPSULE [Concomitant]
  23. METOCLOPRAMIDE SOLUTION FOR INJECTION [Concomitant]
  24. PIROXICAM CAPSULE [Concomitant]
  25. ADVAIR HFA [Suspect]
     Active Substance: FLUTICASONE PROPIONATE\SALMETEROL XINAFOATE
     Indication: PRODUCT USED FOR UNKNOWN INDICATION
  26. FLUCONAZOLE TABLET [Concomitant]
  27. NITROFURANTOIN MONOHYDRATE [Concomitant]
     Active Substance: NITROFURANTOIN MONOHYDRATE
  28. PREDNISONE TABLET [Concomitant]
     Active Substance: PREDNISONE
  29. PROMETHAZINE DM [Concomitant]
     Active Substance: DEXTROMETHORPHAN HYDROBROMIDE\PROMETHAZINE HYDROCHLORIDE
  30. SIMVASTATIN TABLET [Concomitant]
     Active Substance: SIMVASTATIN
  31. TOPIRAMATE TABLET [Concomitant]
     Active Substance: TOPIRAMATE
  32. VENLAFAXINE ER [Concomitant]
     Active Substance: VENLAFAXINE HYDROCHLORIDE
  33. VENTOLIN HFA [Concomitant]
     Active Substance: ALBUTEROL SULFATE
  34. AZITHROMYCIN TABLET [Concomitant]
  35. BUTALBITAL COMPOUND WITH CODEINE [Concomitant]
  36. DIPHENHYDRAMINE SOLUTION FOR INJECTION [Concomitant]
  37. MELOXICAM TABLET [Concomitant]
     Active Substance: MELOXICAM
  38. OXYBUTYNIN CHLORIDE TABLET [Concomitant]

REACTIONS (2)
  - Tachycardia [Unknown]
  - Skin reaction [Recovered/Resolved]
